FAERS Safety Report 6027935-0 (Version None)
Quarter: 2009Q1

REPORT INFORMATION
  Report Type: 
  Country: None (occurrence: None)
  Receive Date: 20090105
  Receipt Date: 20081231
  Transmission Date: 20090719
  Serious: Yes (Other)
  Sender: FDA-Public Use
  Company Number: PHHY2008CN32163

PATIENT

DRUGS (3)
  1. MIACALCIN [Suspect]
     Indication: OSTEOPOROSIS
     Dosage: 50 IU, ONCE/SINGLE
     Route: 030
  2. MIACALCIN [Suspect]
     Indication: CERVICOBRACHIAL SYNDROME
  3. CELECOXIB [Concomitant]
     Dosage: UNK

REACTIONS (1)
  - TACHYCARDIA [None]
